FAERS Safety Report 6577503-7 (Version None)
Quarter: 2010Q1

REPORT INFORMATION
  Report Type: 
  Country: None (occurrence: None)
  Receive Date: 20100211
  Receipt Date: 20100129
  Transmission Date: 20100710
  Serious: Yes (Other)
  Sender: FDA-Public Use
  Company Number: GB-GENZYME-CLOF-1000822

PATIENT
  Sex: Male

DRUGS (3)
  1. EVOLTRA [Suspect]
     Indication: ACUTE MYELOID LEUKAEMIA
     Dosage: UNK UNK, UNK
     Route: 042
     Dates: start: 20091210, end: 20091214
  2. DAUNORUBICIN HCL [Suspect]
     Indication: ACUTE MYELOID LEUKAEMIA
     Dosage: UNK UNK, UNK
     Dates: start: 20091210, end: 20091214
  3. MYLOTARG [Suspect]
     Indication: ACUTE MYELOID LEUKAEMIA
     Dosage: UNK UNK, UNK
     Dates: start: 20091210, end: 20091214

REACTIONS (12)
  - ASCITES [None]
  - ATELECTASIS [None]
  - BILIARY DILATATION [None]
  - BLOOD ALKALINE PHOSPHATASE INCREASED [None]
  - GALLBLADDER ENLARGEMENT [None]
  - GAMMA-GLUTAMYLTRANSFERASE INCREASED [None]
  - HEPATIC VEIN DILATATION [None]
  - HYPERBILIRUBINAEMIA [None]
  - NEUTROPENIA [None]
  - PLEURAL CALCIFICATION [None]
  - PLEURAL EFFUSION [None]
  - THROMBOCYTOPENIA [None]
